FAERS Safety Report 5940678-4 (Version None)
Quarter: 2008Q4

REPORT INFORMATION
  Report Type: 
  Country: None (occurrence: None)
  Receive Date: 20081103
  Receipt Date: 20081103
  Transmission Date: 20090506
  Serious: Yes (Hospitalization)
  Sender: FDA-Public Use
  Company Number: None

PATIENT
  Sex: Female
  Weight: 45.5 kg

DRUGS (2)
  1. FLUOROURACIL [Suspect]
     Dosage: 8750 MG
     Dates: end: 20081025
  2. ELOXATIN [Suspect]
     Dosage: 365 MG
     Dates: end: 20081020

REACTIONS (5)
  - DEHYDRATION [None]
  - GASTROENTERITIS VIRAL [None]
  - GASTROOESOPHAGEAL REFLUX DISEASE [None]
  - RADIATION INJURY [None]
  - SKIN EXFOLIATION [None]
